FAERS Safety Report 4347000-8 (Version None)
Quarter: 2004Q1

REPORT INFORMATION
  Report Type: 
  Country: None (occurrence: None)
  Receive Date: 20040325
  Receipt Date: 20040206
  Transmission Date: 20041129
  Serious: No
  Sender: FDA-Public Use
  Company Number: USA040258386

PATIENT
  Age: 76 Year
  Sex: Female
  Weight: 59 kg

DRUGS (5)
  1. FORTEO [Suspect]
     Indication: OSTEOPOROSIS
     Dates: start: 20040121, end: 20040201
  2. VASOTEC [Concomitant]
  3. TENORMIN [Concomitant]
  4. NORVASC [Concomitant]
  5. PERSANTINE [Concomitant]

REACTIONS (9)
  - BACK PAIN [None]
  - CONSTIPATION [None]
  - DIARRHOEA [None]
  - DIZZINESS [None]
  - DIZZINESS POSTURAL [None]
  - DYSSTASIA [None]
  - FOOD INTOLERANCE [None]
  - HEADACHE [None]
  - VOMITING [None]
